FAERS Safety Report 9408496 (Version 1)
Quarter: 2013Q3

REPORT INFORMATION
  Report Type: Spontaneous
  Country: US (occurrence: US)
  Receive Date: 20130718
  Receipt Date: 20130718
  Transmission Date: 20140515
  Serious: Yes (Other)
  Sender: FDA-Public Use
  Company Number: US-UCBSA-074358

PATIENT
  Age: 50 Year
  Sex: Female
  Weight: 66.67 kg

DRUGS (15)
  1. CIMZIA [Suspect]
     Indication: CROHN^S DISEASE
     Dosage: 200 MG ONGOING ,SYRINGE
     Dates: start: 201204
  2. PRAVASTATIN [Concomitant]
     Indication: BLOOD CHOLESTEROL
     Dosage: 20 MG
  3. OMEPRAZOLE [Concomitant]
     Indication: UNEVALUABLE EVENT
  4. CITALOPRAM [Concomitant]
     Indication: DEPRESSION
  5. CITALOPRAM [Concomitant]
     Indication: ANXIETY
  6. MICARDIS [Concomitant]
     Indication: HYPERTENSION
  7. PREDNISONE [Concomitant]
     Indication: ARTHROPATHY
  8. COLCRYS [Concomitant]
  9. 6MP [Concomitant]
  10. ALPRAZOLAM [Concomitant]
     Dosage: 1 MG-2 PER DAY
  11. CELEXA [Concomitant]
  12. LORTAB [Concomitant]
     Dosage: 10-500MG
  13. TYLENOL [Concomitant]
  14. ESTRADIOL [Concomitant]
  15. VITAMIN B-12 [Concomitant]
     Dosage: 1 SHOT

REACTIONS (16)
  - Hiatus hernia [Unknown]
  - Intervertebral disc protrusion [Unknown]
  - Thyroid cyst [Unknown]
  - Supraventricular extrasystoles [Unknown]
  - Systemic lupus erythematosus [Unknown]
  - Pyrexia [Not Recovered/Not Resolved]
  - Oral mucosal discolouration [Recovering/Resolving]
  - Hunger [Unknown]
  - Diarrhoea [Unknown]
  - Injection site pruritus [Not Recovered/Not Resolved]
  - Injection site swelling [Not Recovered/Not Resolved]
  - Fistula [Unknown]
  - Crohn^s disease [Unknown]
  - Irritable bowel syndrome [Unknown]
  - Arthralgia [Unknown]
  - Lymphadenopathy [Unknown]
